FAERS Safety Report 21554849 (Version 1)
Quarter: 2022Q4

REPORT INFORMATION
  Report Type: Spontaneous
  Country: US (occurrence: US)
  Receive Date: 20221104
  Receipt Date: 20221104
  Transmission Date: 20230112
  Serious: No
  Sender: FDA-Public Use
  Company Number: US-CLIENT CHANGE ME-2022-IMC-001180

PATIENT
  Age: 66 Year
  Sex: Female

DRUGS (1)
  1. KIMMTRAK [Suspect]
     Active Substance: TEBENTAFUSP-TEBN
     Indication: Ocular melanoma
     Dosage: 68 MICROGRAM, SINGLE, DOSE 8
     Dates: start: 20221012, end: 20221012

REACTIONS (2)
  - COVID-19 [Unknown]
  - Product dose omission issue [Unknown]

NARRATIVE: CASE EVENT DATE: 20221019
